FAERS Safety Report 12376742 (Version 2)
Quarter: 2016Q2

REPORT INFORMATION
  Report Type: Report from Study
  Country: US (occurrence: US)
  Receive Date: 20160517
  Receipt Date: 20160517
  Transmission Date: 20160815
  Serious: No
  Sender: FDA-Public Use
  Company Number: US-MALLINCKRODT-T201502906

PATIENT
  Age: 58 Year
  Sex: Female

DRUGS (2)
  1. REPOSITORY CORTICOTROPIN INJECTION [Suspect]
     Active Substance: CORTICOTROPIN
     Dosage: 80 UNITS 3 TIMES PER WEEK
     Route: 058
     Dates: start: 20150719
  2. REPOSITORY CORTICOTROPIN INJECTION [Suspect]
     Active Substance: CORTICOTROPIN
     Indication: RHEUMATOID ARTHRITIS
     Dosage: 80 UNITS 3 TIMES PER WEEK
     Route: 058
     Dates: start: 20150422, end: 201506

REACTIONS (5)
  - Blood pressure increased [Unknown]
  - Thrombosis [Unknown]
  - Skin atrophy [Unknown]
  - Back pain [Unknown]
  - Wound [Unknown]

NARRATIVE: CASE EVENT DATE: 201506
